FAERS Safety Report 9355530 (Version 3)
Quarter: 2014Q2

REPORT INFORMATION
  Report Type: Report from Study
  Country: US (occurrence: US)
  Receive Date: 20130619
  Receipt Date: 20140502
  Transmission Date: 20141212
  Serious: Yes (Other)
  Sender: FDA-Public Use
  Company Number: US-SANOFI-AVENTIS-2013SA061229

PATIENT
  Age: 75 Year
  Sex: Male

DRUGS (1)
  1. AUBAGIO [Suspect]
     Indication: MULTIPLE SCLEROSIS
     Route: 048
     Dates: start: 20140313

REACTIONS (3)
  - Nephrolithiasis [Unknown]
  - Faecal incontinence [Unknown]
  - Hepatic enzyme increased [Unknown]
